FAERS Safety Report 6664493-1 (Version None)
Quarter: 2010Q2

REPORT INFORMATION
  Report Type: 
  Country: None (occurrence: None)
  Receive Date: 20100401
  Receipt Date: 20100324
  Transmission Date: 20101027
  Serious: Yes (Other)
  Sender: FDA-Public Use
  Company Number: GB-B.I. PHARMACEUTICALS,INC./RIDGEFIELD-2010-DE-01875GD

PATIENT
  Sex: Female

DRUGS (4)
  1. PRAMIPEXOLE DIHYDROCHLORIDE [Suspect]
     Indication: PARKINSON'S DISEASE
     Dosage: 6 MG
  2. LEVODOPA [Suspect]
     Indication: PARKINSON'S DISEASE
     Dosage: 400 MG
  3. LEVODOPA [Suspect]
     Dosage: 600 MG
  4. ENTACAPONE [Suspect]
     Indication: PARKINSON'S DISEASE
     Dosage: 800 MG

REACTIONS (5)
  - ABNORMAL BEHAVIOUR [None]
  - COMPULSIVE SHOPPING [None]
  - HYPOMANIA [None]
  - IMPULSE-CONTROL DISORDER [None]
  - PATHOLOGICAL GAMBLING [None]
